FAERS Safety Report 5743880-X (Version None)
Quarter: 2008Q2

REPORT INFORMATION
  Report Type: 
  Country: None (occurrence: None)
  Receive Date: 20080520
  Receipt Date: 20080509
  Transmission Date: 20081010
  Serious: Yes (Hospitalization)
  Sender: FDA-Public Use
  Company Number: JP-ELI_LILLY_AND_COMPANY-JP200805001967

PATIENT
  Age: 77 Year
  Sex: Female

DRUGS (5)
  1. GEMZAR [Suspect]
     Indication: PANCREATIC CARCINOMA
     Dosage: UNK, UNK
     Route: 042
  2. TALION [Concomitant]
     Route: 065
  3. URSO 250 [Concomitant]
     Route: 065
  4. LASIX [Concomitant]
     Route: 065
  5. ALDACTONE [Concomitant]
     Route: 065

REACTIONS (3)
  - DYSPHAGIA [None]
  - INCONTINENCE [None]
  - SPEECH DISORDER [None]
